FAERS Safety Report 21004030 (Version 1)
Quarter: 2022Q2

REPORT INFORMATION
  Report Type: Report from Study
  Country: US (occurrence: US)
  Receive Date: 20220624
  Receipt Date: 20220624
  Transmission Date: 20220720
  Serious: Yes (Other)
  Sender: FDA-Public Use
  Company Number: US-MYLANLABS-2022M1047636

PATIENT
  Age: 18 Year
  Sex: Female

DRUGS (42)
  1. VALPROIC ACID [Suspect]
     Active Substance: VALPROIC ACID
     Indication: Seizure
     Dosage: UNK
     Route: 065
  2. VALPROIC ACID [Suspect]
     Active Substance: VALPROIC ACID
     Indication: Mitochondrial DNA mutation
  3. VALPROIC ACID [Suspect]
     Active Substance: VALPROIC ACID
     Indication: Ataxia
  4. VALPROIC ACID [Suspect]
     Active Substance: VALPROIC ACID
     Indication: Neuropathy peripheral
  5. VALPROIC ACID [Suspect]
     Active Substance: VALPROIC ACID
     Indication: Ophthalmoplegia
  6. VALPROIC ACID [Suspect]
     Active Substance: VALPROIC ACID
     Indication: Dysarthria
  7. PHENYTOIN [Suspect]
     Active Substance: PHENYTOIN
     Indication: Seizure
     Dosage: UNK
     Route: 065
  8. PHENYTOIN [Suspect]
     Active Substance: PHENYTOIN
     Indication: Mitochondrial DNA mutation
  9. PHENYTOIN [Suspect]
     Active Substance: PHENYTOIN
     Indication: Ataxia
  10. PHENYTOIN [Suspect]
     Active Substance: PHENYTOIN
     Indication: Neuropathy peripheral
  11. PHENYTOIN [Suspect]
     Active Substance: PHENYTOIN
     Indication: Dysarthria
  12. PHENYTOIN [Suspect]
     Active Substance: PHENYTOIN
     Indication: Ophthalmoplegia
  13. LEVETIRACETAM [Suspect]
     Active Substance: LEVETIRACETAM
     Indication: Seizure
     Dosage: UNK
     Route: 065
  14. LEVETIRACETAM [Suspect]
     Active Substance: LEVETIRACETAM
     Indication: Mitochondrial DNA mutation
  15. LEVETIRACETAM [Suspect]
     Active Substance: LEVETIRACETAM
     Indication: Ataxia
  16. LEVETIRACETAM [Suspect]
     Active Substance: LEVETIRACETAM
     Indication: Neuropathy peripheral
  17. LEVETIRACETAM [Suspect]
     Active Substance: LEVETIRACETAM
     Indication: Dysarthria
  18. LEVETIRACETAM [Suspect]
     Active Substance: LEVETIRACETAM
     Indication: Ophthalmoplegia
  19. TOPIRAMATE [Suspect]
     Active Substance: TOPIRAMATE
     Indication: Seizure
     Dosage: UNK
     Route: 065
  20. TOPIRAMATE [Suspect]
     Active Substance: TOPIRAMATE
     Indication: Mitochondrial DNA mutation
  21. TOPIRAMATE [Suspect]
     Active Substance: TOPIRAMATE
     Indication: Ataxia
  22. TOPIRAMATE [Suspect]
     Active Substance: TOPIRAMATE
     Indication: Neuropathy peripheral
  23. TOPIRAMATE [Suspect]
     Active Substance: TOPIRAMATE
     Indication: Dysarthria
  24. TOPIRAMATE [Suspect]
     Active Substance: TOPIRAMATE
     Indication: Ophthalmoplegia
  25. CLONAZEPAM [Suspect]
     Active Substance: CLONAZEPAM
     Indication: Seizure
     Dosage: UNK
     Route: 065
  26. CLONAZEPAM [Suspect]
     Active Substance: CLONAZEPAM
     Indication: Mitochondrial DNA mutation
  27. CLONAZEPAM [Suspect]
     Active Substance: CLONAZEPAM
     Indication: Ataxia
  28. CLONAZEPAM [Suspect]
     Active Substance: CLONAZEPAM
     Indication: Neuropathy peripheral
  29. CLONAZEPAM [Suspect]
     Active Substance: CLONAZEPAM
     Indication: Dysarthria
  30. CLONAZEPAM [Suspect]
     Active Substance: CLONAZEPAM
     Indication: Ophthalmoplegia
  31. OXCARBAZEPINE [Suspect]
     Active Substance: OXCARBAZEPINE
     Indication: Mitochondrial DNA mutation
     Dosage: UNK
     Route: 065
  32. OXCARBAZEPINE [Suspect]
     Active Substance: OXCARBAZEPINE
     Indication: Ataxia
  33. OXCARBAZEPINE [Suspect]
     Active Substance: OXCARBAZEPINE
     Indication: Neuropathy peripheral
  34. OXCARBAZEPINE [Suspect]
     Active Substance: OXCARBAZEPINE
     Indication: Dysarthria
  35. OXCARBAZEPINE [Suspect]
     Active Substance: OXCARBAZEPINE
     Indication: Ophthalmoplegia
  36. OXCARBAZEPINE [Suspect]
     Active Substance: OXCARBAZEPINE
     Indication: Seizure
  37. LACOSAMIDE [Suspect]
     Active Substance: LACOSAMIDE
     Indication: Seizure
     Dosage: UNK
     Route: 065
  38. LACOSAMIDE [Suspect]
     Active Substance: LACOSAMIDE
     Indication: Mitochondrial DNA mutation
  39. LACOSAMIDE [Suspect]
     Active Substance: LACOSAMIDE
     Indication: Ataxia
  40. LACOSAMIDE [Suspect]
     Active Substance: LACOSAMIDE
     Indication: Neuropathy peripheral
  41. LACOSAMIDE [Suspect]
     Active Substance: LACOSAMIDE
     Indication: Dysarthria
  42. LACOSAMIDE [Suspect]
     Active Substance: LACOSAMIDE
     Indication: Ophthalmoplegia

REACTIONS (4)
  - Hypertransaminasaemia [Unknown]
  - Ataxia [Unknown]
  - Sedation [Unknown]
  - Diplopia [Unknown]
